FAERS Safety Report 23890754 (Version 2)
Quarter: 2024Q2

REPORT INFORMATION
  Report Type: Report from Study
  Country: US (occurrence: US)
  Receive Date: 20240523
  Receipt Date: 20240610
  Transmission Date: 20240716
  Serious: Yes (Death)
  Sender: FDA-Public Use
  Company Number: US-TAIHOP-2024-005179

PATIENT
  Age: 72 Year
  Sex: Male
  Weight: 71.12 kg

DRUGS (1)
  1. LONSURF [Suspect]
     Active Substance: TIPIRACIL HYDROCHLORIDE\TRIFLURIDINE
     Indication: Rectal cancer
     Dosage: CURRENT CYCLE UNKNOWN
     Route: 048
     Dates: start: 20240222

REACTIONS (3)
  - Pneumonia aspiration [Fatal]
  - Sepsis [Fatal]
  - Acute respiratory failure [Fatal]
